FAERS Safety Report 10301582 (Version 1)
Quarter: 2014Q3

REPORT INFORMATION
  Report Type: Spontaneous
  Country: US (occurrence: None)
  Receive Date: 20140709
  Receipt Date: 20140709
  Transmission Date: 20150326
  Serious: No
  Sender: FDA-Public Use
  Company Number: None

PATIENT
  Age: 68 Year
  Sex: Male
  Weight: 78.2 kg

DRUGS (1)
  1. ATROVASTATIN [Suspect]
     Active Substance: ATORVASTATIN CALCIUM
     Indication: HYPERLIPIDAEMIA
     Route: 048
     Dates: start: 20121129, end: 20140407

REACTIONS (3)
  - Parapsoriasis [None]
  - Dermatitis psoriasiform [None]
  - Erythema multiforme [None]

NARRATIVE: CASE EVENT DATE: 20140407
